FAERS Safety Report 19574397 (Version 1)
Quarter: 2021Q3

REPORT INFORMATION
  Report Type: Spontaneous
  Country: US (occurrence: US)
  Receive Date: 20210719
  Receipt Date: 20210719
  Transmission Date: 20211014
  Serious: No
  Sender: FDA-Public Use
  Company Number: US-CIPLA LTD.-2021US04403

PATIENT

DRUGS (4)
  1. EMTRICITABINE/TENOFOVIR [Suspect]
     Active Substance: EMTRICITABINE\TENOFOVIR
     Indication: ANTIRETROVIRAL THERAPY
     Dosage: 1 (UNITS UNSPECIFIED) DAILY DOSE, COURSE 1
     Route: 048
  2. RITONAVIR. [Suspect]
     Active Substance: RITONAVIR
     Indication: ANTIRETROVIRAL THERAPY
     Dosage: 100 (UNITS UNSPECIFIED) DAILY DOSE, COUSE 1
     Route: 048
  3. ATAZANAVIR. [Suspect]
     Active Substance: ATAZANAVIR
     Dosage: 400 (UNITS UNSPECIFIED) DAILY DOSE, COURSE 2
     Route: 048
  4. ATAZANAVIR. [Suspect]
     Active Substance: ATAZANAVIR
     Indication: ANTIRETROVIRAL THERAPY
     Dosage: 300 (UNITS UNSPECIFIED) DAILY DOSE, COURSE 1
     Route: 048

REACTIONS (2)
  - Exposure during pregnancy [Unknown]
  - No adverse event [Unknown]
